FAERS Safety Report 25366780 (Version 1)
Quarter: 2025Q2

REPORT INFORMATION
  Report Type: Spontaneous
  Country: CN (occurrence: CN)
  Receive Date: 20250528
  Receipt Date: 20250528
  Transmission Date: 20250717
  Serious: Yes (Other)
  Sender: AMGEN
  Company Number: CN-AMGEN-CHNSP2025102438

PATIENT

DRUGS (1)
  1. APREMILAST [Suspect]
     Active Substance: APREMILAST
     Indication: Psoriasis
     Route: 065

REACTIONS (35)
  - Psoriatic arthropathy [Unknown]
  - Skin haemorrhage [Unknown]
  - Gastrooesophageal reflux disease [Unknown]
  - Gastrointestinal disorder [Unknown]
  - Irritable bowel syndrome [Unknown]
  - Respiratory tract infection [Unknown]
  - Sinus disorder [Unknown]
  - Ear infection [Unknown]
  - Gastroenteritis viral [Unknown]
  - Sinusitis [Unknown]
  - Migraine [Unknown]
  - Sinus headache [Unknown]
  - Back disorder [Unknown]
  - Tension headache [Unknown]
  - Psoriasis [Unknown]
  - Gallbladder disorder [Unknown]
  - Arthropathy [Unknown]
  - Diarrhoea [Unknown]
  - Nausea [Unknown]
  - Headache [Unknown]
  - Therapy non-responder [Unknown]
  - Abdominal discomfort [Unknown]
  - Weight decreased [Unknown]
  - Depression [Unknown]
  - Abdominal pain upper [Unknown]
  - Skin fissures [Unknown]
  - Vomiting [Unknown]
  - Dyspepsia [Unknown]
  - Frequent bowel movements [Unknown]
  - Flatulence [Unknown]
  - Faeces soft [Unknown]
  - Upper respiratory tract infection [Unknown]
  - Multiple allergies [Unknown]
  - Stress [Unknown]
  - Mood altered [Unknown]
